FAERS Safety Report 7619717-0 (Version None)
Quarter: 2011Q3

REPORT INFORMATION
  Report Type: 
  Country: None (occurrence: None)
  Receive Date: 20110719
  Receipt Date: 20110708
  Transmission Date: 20111222
  Serious: Yes (Death, Hospitalization)
  Sender: FDA-Public Use
  Company Number: US-ELI_LILLY_AND_COMPANY-US201105004283

PATIENT
  Sex: Female

DRUGS (14)
  1. ASPIRIN [Concomitant]
  2. RANEXA [Concomitant]
  3. FORTEO [Suspect]
     Indication: OSTEOPOROSIS
     Dosage: 20 UG, QD
     Route: 058
     Dates: start: 20100601, end: 20110301
  4. LASIX [Concomitant]
  5. VITAMIN B6 [Concomitant]
  6. HYDRALAZINE HCL [Concomitant]
  7. JANUVIA [Concomitant]
  8. ADVAIR DISKUS 100/50 [Concomitant]
  9. FAMOTIDINE [Concomitant]
  10. VESICARE [Concomitant]
  11. NORVASC [Concomitant]
  12. COREG [Concomitant]
  13. LIPITOR [Concomitant]
  14. ISOSORBIDE DINITRATE [Concomitant]

REACTIONS (3)
  - CARDIAC FAILURE CONGESTIVE [None]
  - RENAL FAILURE [None]
  - PULMONARY OEDEMA [None]
